FAERS Safety Report 4987451-1 (Version None)
Quarter: 2006Q2

REPORT INFORMATION
  Report Type: 
  Country: None (occurrence: None)
  Receive Date: 20060501
  Receipt Date: 20051006
  Transmission Date: 20061013
  Serious: Yes (Hospitalization)
  Sender: FDA-Public Use
  Company Number: US-MERCK-0510USA06388

PATIENT
  Age: 45 Year
  Sex: Female
  Weight: 80 kg

DRUGS (1)
  1. VIOXX [Suspect]
     Indication: ARTHRITIS
     Route: 048
     Dates: start: 19990601, end: 20030301

REACTIONS (5)
  - AGORAPHOBIA [None]
  - EMOTIONAL DISTRESS [None]
  - GENERALISED ANXIETY DISORDER [None]
  - INSOMNIA [None]
  - TRANSIENT ISCHAEMIC ATTACK [None]
